FAERS Safety Report 4458574-0 (Version None)
Quarter: 2004Q3

REPORT INFORMATION
  Report Type: 
  Country: None (occurrence: None)
  Receive Date: 20040917
  Receipt Date: 20030930
  Transmission Date: 20050211
  Serious: Yes (Hospitalization)
  Sender: FDA-Public Use
  Company Number: US-JNJFOC-20031000156

PATIENT
  Age: 20 Year
  Sex: Female

DRUGS (2)
  1. TOPAMAX [Suspect]
     Indication: MIGRAINE
     Dosage: 25 MG, IN 1 DAY, ORAL
     Route: 048
     Dates: end: 20030927
  2. PAXIL CR [Concomitant]

REACTIONS (1)
  - DRUG WITHDRAWAL CONVULSIONS [None]
